FAERS Safety Report 7296794-0 (Version None)
Quarter: 2011Q1

REPORT INFORMATION
  Report Type: 
  Country: None (occurrence: None)
  Receive Date: 20110216
  Receipt Date: 20110210
  Transmission Date: 20110831
  Serious: Yes (Hospitalization)
  Sender: FDA-Public Use
  Company Number: B0699897A

PATIENT

DRUGS (3)
  1. CEFAMEZIN [Concomitant]
  2. DEPAKENE [Concomitant]
     Dosage: 600MG PER DAY
     Route: 048
  3. LAMICTAL [Suspect]
     Dosage: 50MG PER DAY
     Route: 048
     Dates: start: 20110125, end: 20110204

REACTIONS (2)
  - PYREXIA [None]
  - HYPERTHERMIA [None]
